FAERS Safety Report 5709734-X (Version None)
Quarter: 2008Q2

REPORT INFORMATION
  Report Type: 
  Country: None (occurrence: None)
  Receive Date: 20080418
  Receipt Date: 20070608
  Transmission Date: 20081010
  Serious: No
  Sender: FDA-Public Use
  Company Number: US-ASTRAZENECA-2007UW13874

PATIENT
  Age: 84 Year
  Sex: Male
  Weight: 98.9 kg

DRUGS (5)
  1. CASODEX [Suspect]
     Indication: PROSTATE CANCER
     Route: 048
     Dates: start: 20030101
  2. NEXIUM [Suspect]
     Route: 048
     Dates: start: 20050101
  3. TRELSTAR [Suspect]
  4. ATENOLOL [Concomitant]
  5. ZOLADEX [Concomitant]

REACTIONS (2)
  - MALAISE [None]
  - PAIN IN EXTREMITY [None]
